FAERS Safety Report 4961870-1 (Version None)
Quarter: 2006Q1

REPORT INFORMATION
  Report Type: 
  Country: None (occurrence: None)
  Receive Date: 20060329
  Receipt Date: 20060327
  Transmission Date: 20060701
  Serious: No
  Sender: FDA-Public Use
  Company Number: C06-037

PATIENT
  Age: 51 Year
  Sex: Female
  Weight: 113.3993 kg

DRUGS (1)
  1. OXYCODONE TABLETS, USP 30 MG [Suspect]
     Indication: MIGRAINE
     Dosage: 3 TABLETS A DAY

REACTIONS (1)
  - DRUG INEFFECTIVE [None]
